FAERS Safety Report 12507160 (Version 1)
Quarter: 2016Q2

REPORT INFORMATION
  Report Type: Report from Study
  Country: GB (occurrence: GB)
  Receive Date: 20160629
  Receipt Date: 20160629
  Transmission Date: 20160815
  Serious: Yes (Hospitalization, Other)
  Sender: FDA-Public Use
  Company Number: GB-ROCHE-1781694

PATIENT
  Sex: Male

DRUGS (1)
  1. ESBRIET [Suspect]
     Active Substance: PIRFENIDONE
     Indication: IDIOPATHIC PULMONARY FIBROSIS
     Route: 065
     Dates: start: 20131130

REACTIONS (7)
  - Cough [Unknown]
  - Weight decreased [Unknown]
  - Condition aggravated [Unknown]
  - Pneumothorax [Unknown]
  - Malaise [Unknown]
  - Back pain [Unknown]
  - General physical health deterioration [Unknown]
